FAERS Safety Report 16019986 (Version 1)
Quarter: 2019Q1

REPORT INFORMATION
  Report Type: Spontaneous
  Country: FR (occurrence: FR)
  Receive Date: 20190228
  Receipt Date: 20190228
  Transmission Date: 20190418
  Serious: Yes (Death, Hospitalization)
  Sender: FDA-Public Use
  Company Number: FR-009507513-1901FRA005825

PATIENT
  Age: 58 Year
  Sex: Male

DRUGS (1)
  1. ISENTRESS [Suspect]
     Active Substance: RALTEGRAVIR POTASSIUM
     Dosage: 400 MG, 1 TABLET IN THE MORNING AND ONE IN THE EVENING
     Route: 048

REACTIONS (2)
  - General physical health deterioration [Fatal]
  - Dysphagia [Unknown]
